FAERS Safety Report 11739544 (Version 1)
Quarter: 2015Q4

REPORT INFORMATION
  Report Type: Spontaneous
  Country: GB (occurrence: GB)
  Receive Date: 20151113
  Receipt Date: 20151113
  Transmission Date: 20160304
  Serious: Yes (Disabling)
  Sender: FDA-Public Use
  Company Number: ALCN2015GB006956

PATIENT
  Age: 56 Year
  Sex: Male
  Weight: 83 kg

DRUGS (1)
  1. NEVANAC [Suspect]
     Active Substance: NEPAFENAC
     Indication: CATARACT OPERATION
     Dosage: 1 GTT, TID
     Route: 047
     Dates: start: 20151018, end: 20151022

REACTIONS (2)
  - Ulcerative keratitis [Recovered/Resolved]
  - Pinguecula [Unknown]

NARRATIVE: CASE EVENT DATE: 20151021
